FAERS Safety Report 18537104 (Version 1)
Quarter: 2020Q4

REPORT INFORMATION
  Report Type: Spontaneous
  Country: US (occurrence: US)
  Receive Date: 20201123
  Receipt Date: 20201123
  Transmission Date: 20210114
  Serious: No
  Sender: FDA-Public Use
  Company Number: US-PERRIGO-20US003644

PATIENT
  Sex: Male
  Weight: 95.24 kg

DRUGS (3)
  1. TAMSULOSIN [Concomitant]
     Active Substance: TAMSULOSIN
     Indication: PROSTATOMEGALY
     Dosage: UNK
     Route: 065
  2. POLYETHYLENE GLYCOL 3350. [Suspect]
     Active Substance: POLYETHYLENE GLYCOL 3350
     Indication: CONSTIPATION
     Dosage: 17 G, BID
     Route: 048
     Dates: start: 2016
  3. SIMVASTATIN. [Concomitant]
     Active Substance: SIMVASTATIN
     Indication: INFLAMMATION
     Dosage: 10 MG
     Route: 065

REACTIONS (3)
  - Therapeutic product effect decreased [Unknown]
  - Inappropriate schedule of product administration [Not Recovered/Not Resolved]
  - Incorrect product administration duration [Not Recovered/Not Resolved]

NARRATIVE: CASE EVENT DATE: 2016
